FAERS Safety Report 6369099-X (Version None)
Quarter: 2009Q3

REPORT INFORMATION
  Report Type: 
  Country: None (occurrence: None)
  Receive Date: 20090922
  Receipt Date: 20090916
  Transmission Date: 20100115
  Serious: Yes (Life-Threatening, Hospitalization)
  Sender: FDA-Public Use
  Company Number: PHHY2009JP13656

PATIENT
  Sex: Male
  Weight: 57 kg

DRUGS (8)
  1. DIOVAN [Suspect]
     Indication: HYPERTENSION
     Dosage: 80 MG DAILY
     Route: 048
     Dates: start: 20040901, end: 20090407
  2. GASTER [Suspect]
     Dosage: 20 MG DAILY
     Route: 048
     Dates: end: 20090407
  3. ALDACTONE [Concomitant]
     Indication: HYPERTENSION
     Dosage: 25 MG
     Route: 048
     Dates: start: 20040901, end: 20090407
  4. ADALAT CC [Concomitant]
     Indication: HYPERTENSION
     Dosage: 60 MG
     Route: 048
     Dates: start: 20040901, end: 20090407
  5. PERSANTINE [Concomitant]
     Dosage: 100 MG
     Route: 048
     Dates: start: 20080401, end: 20090407
  6. METHYLPREDNISOLONE ACETATE [Concomitant]
     Dosage: 1000 MG DAILY
     Dates: start: 20090408, end: 20090410
  7. METHYLPREDNISOLONE ACETATE [Concomitant]
     Dosage: 40 MG DAILY
     Dates: start: 20090429
  8. METHYLPREDNISOLONE ACETATE [Concomitant]
     Dosage: 35 MG DAILY
     Dates: start: 20090509

REACTIONS (12)
  - BLOOD LACTATE DEHYDROGENASE INCREASED [None]
  - C-REACTIVE PROTEIN INCREASED [None]
  - GAMMA-GLUTAMYLTRANSFERASE DECREASED [None]
  - HAEMATOCRIT DECREASED [None]
  - HAEMOGLOBIN DECREASED [None]
  - INTERSTITIAL LUNG DISEASE [None]
  - OXYGEN SATURATION DECREASED [None]
  - PNEUMONIA BACTERIAL [None]
  - PRODUCTIVE COUGH [None]
  - PYREXIA [None]
  - RED BLOOD CELL COUNT DECREASED [None]
  - WHITE BLOOD CELL COUNT INCREASED [None]
